FAERS Safety Report 5606160-9 (Version None)
Quarter: 2008Q1

REPORT INFORMATION
  Report Type: 
  Country: None (occurrence: None)
  Receive Date: 20080129
  Receipt Date: 20071102
  Transmission Date: 20080703
  Serious: No
  Sender: FDA-Public Use
  Company Number: A0691247A

PATIENT
  Age: 49 Year
  Sex: Female

DRUGS (29)
  1. MEPRON [Suspect]
     Dosage: 6ML TWICE PER DAY
     Route: 048
     Dates: start: 20070701
  2. KETEK [Concomitant]
  3. AMOXICILLIN [Concomitant]
  4. PROBENECID [Concomitant]
  5. NYSTATIN [Concomitant]
  6. LEVOTHROID [Concomitant]
  7. CYTOMEL [Concomitant]
  8. MILK THISTLE [Concomitant]
  9. LICORICE [Concomitant]
  10. ARTEMISIA [Concomitant]
  11. IMACORT [Concomitant]
  12. CAT'S CLAW [Concomitant]
  13. SARSAPARILLA [Concomitant]
  14. GARLIC [Concomitant]
  15. MAGNESIUM [Concomitant]
  16. ECHINACEA [Concomitant]
  17. GINSENG [Concomitant]
  18. PANTOTHENIC ACID [Concomitant]
  19. ASCORBIC ACID [Concomitant]
  20. DHEA [Concomitant]
  21. BORAGE OIL [Concomitant]
  22. VITAMIN E [Concomitant]
  23. KELP [Concomitant]
  24. BETA CAROTENE [Concomitant]
  25. VITAMIN A + VITAMIN D [Concomitant]
  26. ZINC [Concomitant]
  27. FLAX OIL [Concomitant]
  28. FISH OIL [Concomitant]
  29. BORAGE OIL [Concomitant]

REACTIONS (1)
  - DRUG INEFFECTIVE [None]
